FAERS Safety Report 21126417 (Version 1)
Quarter: 2022Q3

REPORT INFORMATION
  Report Type: Spontaneous
  Country: US (occurrence: US)
  Receive Date: 20220725
  Receipt Date: 20220725
  Transmission Date: 20221026
  Serious: Yes (Other)
  Sender: FDA-Public Use
  Company Number: US-PFIZER INC-202200991292

PATIENT
  Age: 90 Year
  Sex: Male
  Weight: 74.84 kg

DRUGS (1)
  1. BOSULIF [Suspect]
     Active Substance: BOSUTINIB MONOHYDRATE
     Indication: Leukaemia
     Dosage: 400 MG, 1X/DAY (WITH OR WITHOUT FOOD BY MOUTH)
     Route: 048
     Dates: start: 20220518, end: 2022

REACTIONS (4)
  - Pulmonary oedema [Unknown]
  - Increased bronchial secretion [Unknown]
  - Productive cough [Recovered/Resolved]
  - Eye discharge [Unknown]

NARRATIVE: CASE EVENT DATE: 20220101
